FAERS Safety Report 6105119-5 (Version None)
Quarter: 2009Q1

REPORT INFORMATION
  Report Type: 
  Country: None (occurrence: None)
  Receive Date: 20090306
  Receipt Date: 20090203
  Transmission Date: 20090719
  Serious: No
  Sender: FDA-Public Use
  Company Number: US-BAYER-200812505BCC

PATIENT
  Age: 75 Year
  Sex: Female
  Weight: 85 kg

DRUGS (7)
  1. ALEVE [Suspect]
     Indication: ANALGESIA
     Dosage: TOTAL DAILY DOSE: 220 MG  UNIT DOSE: 220 MG
     Dates: start: 20080606
  2. IBUPROFEN [Concomitant]
     Indication: DRUG USE FOR UNKNOWN INDICATION
     Dates: start: 20080606
  3. METFORMIN [Concomitant]
  4. GLYBURIDE [Concomitant]
  5. ACTOS [Concomitant]
  6. VENLAFAXINE HCL [Concomitant]
  7. ASPIRIN [Concomitant]

REACTIONS (1)
  - COAGULOPATHY [None]
